FAERS Safety Report 24396600 (Version 2)
Quarter: 2024Q4

REPORT INFORMATION
  Report Type: Spontaneous
  Country: FR (occurrence: FR)
  Receive Date: 20241004
  Receipt Date: 20241021
  Transmission Date: 20250114
  Serious: Yes (Other)
  Sender: BIOCON
  Company Number: FR-MIMS-BCONMC-7639

PATIENT

DRUGS (1)
  1. HULIO [Suspect]
     Active Substance: ADALIMUMAB-FKJP
     Indication: Ankylosing spondylitis
     Dosage: 40 MILLIGRAM (2 YEARS AGO)
     Route: 065

REACTIONS (2)
  - Renal cancer [Unknown]
  - Rheumatic disorder [Unknown]
